FAERS Safety Report 5940324-X (Version None)
Quarter: 2008Q4

REPORT INFORMATION
  Report Type: 
  Country: None (occurrence: None)
  Receive Date: 20081104
  Receipt Date: 20081027
  Transmission Date: 20090506
  Serious: Yes (Other)
  Sender: FDA-Public Use
  Company Number: B0543475A

PATIENT
  Age: 30 Year
  Sex: Female

DRUGS (6)
  1. FOSAMPRENAVIR [Suspect]
     Indication: HIV INFECTION
     Route: 065
     Dates: start: 20060427
  2. TENOFOVIR [Suspect]
     Indication: HIV INFECTION
     Route: 065
     Dates: start: 20060427
  3. KALETRA [Suspect]
     Indication: HIV INFECTION
     Dates: start: 20060427
  4. SAQUINAVIR [Suspect]
     Indication: HIV INFECTION
     Dosage: 2000MG PER DAY
     Route: 048
     Dates: start: 20070515, end: 20070911
  5. ENFUVIRTIDE [Suspect]
     Indication: HIV INFECTION
     Dosage: 90MG TWICE PER DAY
     Route: 058
     Dates: start: 20070824, end: 20070903
  6. WATER [Suspect]
     Indication: INVESTIGATION
     Route: 058

REACTIONS (6)
  - DRUG EXPOSURE DURING PREGNANCY [None]
  - INJECTION SITE REACTION [None]
  - LIVE BIRTH [None]
  - MALAISE [None]
  - MULTIPLE-DRUG RESISTANCE [None]
  - PRURITUS [None]
